FAERS Safety Report 7133357-1 (Version None)
Quarter: 2010Q4

REPORT INFORMATION
  Report Type: 
  Country: None (occurrence: None)
  Receive Date: 20101202
  Receipt Date: 20101123
  Transmission Date: 20110411
  Serious: Yes (Hospitalization, Other)
  Sender: FDA-Public Use
  Company Number: US-PFIZER INC-2008067502

PATIENT
  Sex: Female
  Weight: 102 kg

DRUGS (1)
  1. CELEBREX [Suspect]

REACTIONS (4)
  - CARDIAC MURMUR [None]
  - CONVULSION [None]
  - EXCORIATION [None]
  - PERIORBITAL OEDEMA [None]
